FAERS Safety Report 13027811 (Version 1)
Quarter: 2016Q4

REPORT INFORMATION
  Report Type: Spontaneous
  Country: FR (occurrence: FR)
  Receive Date: 20161214
  Receipt Date: 20161214
  Transmission Date: 20170207
  Serious: Yes (Hospitalization)
  Sender: FDA-Public Use
  Company Number: FR-JNJFOC-20161210945

PATIENT
  Age: 30 Year
  Sex: Female

DRUGS (1)
  1. XARELTO [Suspect]
     Active Substance: RIVAROXABAN
     Indication: DEEP VEIN THROMBOSIS
     Route: 048
     Dates: start: 20161107, end: 20161111

REACTIONS (3)
  - Dizziness [Unknown]
  - Pulmonary embolism [Unknown]
  - Headache [Unknown]

NARRATIVE: CASE EVENT DATE: 201611
